FAERS Safety Report 9184228 (Version 7)
Quarter: 2018Q1

REPORT INFORMATION
  Report Type: Report from Study
  Country: NL (occurrence: NL)
  Receive Date: 20130322
  Receipt Date: 20180207
  Transmission Date: 20180509
  Serious: Yes (Hospitalization)
  Sender: FDA-Public Use
  Company Number: NL-ROCHE-1205597

PATIENT
  Age: 60 Year
  Sex: Female
  Weight: 72 kg

DRUGS (6)
  1. TOCILIZUMAB. [Suspect]
     Active Substance: TOCILIZUMAB
     Dosage: TEMPORARILY INTERRUPTED BETWEEN 19/FEB/2013 AND 12/JUL/2013.
     Route: 042
     Dates: start: 20110915, end: 20160210
  2. TOCILIZUMAB. [Suspect]
     Active Substance: TOCILIZUMAB
     Route: 042
     Dates: start: 20130122, end: 20130219
  3. TOCILIZUMAB. [Suspect]
     Active Substance: TOCILIZUMAB
     Route: 042
     Dates: start: 20121123
  4. TOCILIZUMAB. [Suspect]
     Active Substance: TOCILIZUMAB
     Route: 042
     Dates: start: 20121221
  5. TOCILIZUMAB. [Suspect]
     Active Substance: TOCILIZUMAB
     Indication: RHEUMATOID ARTHRITIS
     Route: 042
     Dates: start: 20111013
  6. TOCILIZUMAB. [Suspect]
     Active Substance: TOCILIZUMAB
     Route: 042
     Dates: start: 20130712

REACTIONS (2)
  - Cholelithiasis [Recovered/Resolved]
  - Cholangitis [Recovered/Resolved]

NARRATIVE: CASE EVENT DATE: 20130307
